FAERS Safety Report 20307531 (Version 1)
Quarter: 2022Q1

REPORT INFORMATION
  Report Type: Spontaneous
  Country: SE (occurrence: SE)
  Receive Date: 20220107
  Receipt Date: 20220107
  Transmission Date: 20220423
  Serious: Yes (Hospitalization)
  Sender: FDA-Public Use
  Company Number: None

PATIENT
  Age: 82 Year
  Sex: Male

DRUGS (19)
  1. OXYCODONE [Suspect]
     Active Substance: OXYCODONE
     Indication: Arthralgia
     Dates: end: 20210817
  2. MIRABEGRON [Concomitant]
     Active Substance: MIRABEGRON
  3. ACETAMINOPHEN [Concomitant]
     Active Substance: ACETAMINOPHEN
  4. UREA [Concomitant]
     Active Substance: UREA
  5. CALCIUM\CHOLECALCIFEROL [Concomitant]
     Active Substance: CALCIUM\CHOLECALCIFEROL
  6. SODIUM PICOSULFATE [Concomitant]
     Active Substance: SODIUM PICOSULFATE
  7. FINASTERIDE [Concomitant]
     Active Substance: FINASTERIDE
  8. NITROLINGUAL [Concomitant]
     Active Substance: NITROGLYCERIN
  9. CLOPIDOGREL [Concomitant]
     Active Substance: CLOPIDOGREL BISULFATE
  10. SIMVASTATIN [Concomitant]
     Active Substance: SIMVASTATIN
  11. ALFUZOSIN [Concomitant]
     Active Substance: ALFUZOSIN
     Dosage: ALFUZOSIN RIVOPHARM
  12. levocar [Concomitant]
  13. PRAMIPEXOLE [Concomitant]
     Active Substance: PRAMIPEXOLE
  14. METOPROLOL [Concomitant]
     Active Substance: METOPROLOL
  15. furix [Concomitant]
  16. HYDREA [Concomitant]
     Active Substance: HYDROXYUREA
  17. folacin [Concomitant]
  18. MOVICOL [Concomitant]
     Active Substance: POLYETHYLENE GLYCOL 3350\POTASSIUM CHLORIDE\SODIUM BICARBONATE\SODIUM CHLORIDE
  19. MOMETASONE FUROATE [Concomitant]
     Active Substance: MOMETASONE FUROATE

REACTIONS (1)
  - Hallucination [Unknown]

NARRATIVE: CASE EVENT DATE: 20210816
